FAERS Safety Report 16556235 (Version 2)
Quarter: 2019Q3

REPORT INFORMATION
  Report Type: Spontaneous
  Country: CO (occurrence: CO)
  Receive Date: 20190710
  Receipt Date: 20190717
  Transmission Date: 20191004
  Serious: Yes (Death, Hospitalization, Other)
  Sender: FDA-Public Use
  Company Number: CO-BIOMARINAP-CO-2019-124624

PATIENT
  Age: 7 Year
  Sex: Female
  Weight: 14 kg

DRUGS (1)
  1. NAGLAZYME [Suspect]
     Active Substance: GALSULFASE
     Indication: MUCOPOLYSACCHARIDOSIS VI
     Dosage: 20 MILLIGRAM
     Route: 042
     Dates: start: 20190503

REACTIONS (11)
  - Cardiac failure [Unknown]
  - Bradycardia [Unknown]
  - Pulseless electrical activity [Unknown]
  - Productive cough [Unknown]
  - Asthma [Unknown]
  - Vomiting [Unknown]
  - Cardiogenic shock [Unknown]
  - Cardiac arrest [Fatal]
  - Rhonchi [Unknown]
  - Hypotension [Unknown]
  - Fatigue [Unknown]

NARRATIVE: CASE EVENT DATE: 20190709
